FAERS Safety Report 26076370 (Version 1)
Quarter: 2025Q4

REPORT INFORMATION
  Report Type: Spontaneous
  Country: US (occurrence: US)
  Receive Date: 20251121
  Receipt Date: 20251121
  Transmission Date: 20260117
  Serious: Yes (Other)
  Sender: DR REDDYS
  Company Number: US-DRL-USA-USA/2025/11/017434

PATIENT
  Age: 47 Year
  Sex: Female

DRUGS (4)
  1. DIAZEPAM [Suspect]
     Active Substance: DIAZEPAM
     Indication: Stiff person syndrome
  2. RITUXIMAB [Concomitant]
     Active Substance: RITUXIMAB
     Indication: Stiff person syndrome
  3. BACLOFEN [Concomitant]
     Active Substance: BACLOFEN
     Indication: Stiff person syndrome
  4. HUMAN IMMUNOGLOBULIN G [Concomitant]
     Active Substance: HUMAN IMMUNOGLOBULIN G
     Indication: Stiff person syndrome

REACTIONS (1)
  - Drug ineffective [Unknown]
